FAERS Safety Report 4466366-1 (Version None)
Quarter: 2004Q3

REPORT INFORMATION
  Report Type: 
  Country: None (occurrence: None)
  Receive Date: 20040930
  Receipt Date: 20040920
  Transmission Date: 20050211
  Serious: Yes (Hospitalization)
  Sender: FDA-Public Use
  Company Number: 2003IM000527

PATIENT
  Age: 57 Year
  Sex: Female
  Weight: 64.8644 kg

DRUGS (7)
  1. ACTIMMUNE [Suspect]
     Indication: OVARIAN CANCER
     Dosage: 100 UG; TIW; SUBCUTANEOUS
     Route: 058
     Dates: start: 20030319
  2. CARBOPLATIN [Suspect]
     Indication: OVARIAN CANCER
     Dosage: Q3W; INTRAVENOUS
     Route: 042
     Dates: start: 20030319
  3. PACLITAXEL [Suspect]
     Indication: OVARIAN CANCER
     Dosage: Q3W; INTRAVENOUS
     Route: 042
     Dates: start: 20030319
  4. DECADRON [Concomitant]
  5. ANZEMET [Concomitant]
  6. PEPCID [Concomitant]
  7. BENADRYL [Concomitant]

REACTIONS (6)
  - ASCITES [None]
  - BILIARY COLIC [None]
  - BILIARY DYSKINESIA [None]
  - EFFUSION [None]
  - LUNG NEOPLASM [None]
  - WHITE BLOOD CELLS URINE [None]
